FAERS Safety Report 7282427-6 (Version None)
Quarter: 2011Q1

REPORT INFORMATION
  Report Type: 
  Country: None (occurrence: None)
  Receive Date: 20110209
  Receipt Date: 20110201
  Transmission Date: 20110831
  Serious: Yes (Hospitalization)
  Sender: FDA-Public Use
  Company Number: DE-BRISTOL-MYERS SQUIBB COMPANY-15180672

PATIENT
  Age: 73 Year
  Sex: Female

DRUGS (13)
  1. INSPRA [Concomitant]
     Dosage: INSPRA 25
     Dates: start: 20060601
  2. PROTELOS [Concomitant]
     Dates: start: 20080101
  3. ABATACEPT [Suspect]
     Indication: RHEUMATOID ARTHRITIS
     Dosage: INT:JAN9,REST:5MR9,INT:19OC9(CUM.DOSE:NOV8-OCT9:8250MG)RESTR:5MAY9 ALSO14JAN10.
     Route: 042
     Dates: start: 20081120
  4. CALCIUM CARBONATE + CHOLECALCIFEROL [Concomitant]
     Dosage: BEFORE 2003 CALCILAC
  5. ASS 100 [Concomitant]
     Dates: start: 20060601
  6. FLUVASTATIN [Concomitant]
     Dosage: LOCOL 80
     Dates: start: 20060601
  7. METHYLPREDNISOLONE [Concomitant]
     Dosage: BEFORE 2003
  8. REMERGIL [Concomitant]
     Dosage: REMERGIL 30
     Dates: start: 20081001
  9. METHOTREXATE [Suspect]
     Indication: RHEUMATOID ARTHRITIS
     Dosage: INTERR AND RESRTED ON FEB2009:05MAR2009-15MG
     Route: 048
     Dates: start: 20040101
  10. PANTOZOL [Concomitant]
     Dosage: PANTOZOL 20
     Dates: start: 20060601
  11. PENTAERYTHRITOL TETRANITRATE [Concomitant]
     Dosage: PENTALONG 80
     Dates: start: 20070101
  12. BISOPROLOL [Concomitant]
     Dosage: BISOPROLOL 5
     Dates: start: 20030501
  13. LISINOPRIL [Concomitant]
     Dosage: LISINOPRIL 5
     Dates: start: 20061101

REACTIONS (6)
  - NASOPHARYNGITIS [None]
  - DIZZINESS [None]
  - MAJOR DEPRESSION [None]
  - ASTHENIA [None]
  - WEIGHT DECREASED [None]
  - PANIC ATTACK [None]
